FAERS Safety Report 16669536 (Version 1)
Quarter: 2019Q3

REPORT INFORMATION
  Report Type: Spontaneous
  Country: US (occurrence: US)
  Receive Date: 20190805
  Receipt Date: 20190805
  Transmission Date: 20191004
  Serious: Yes (Life-Threatening, Other)
  Sender: FDA-Public Use
  Company Number: None

PATIENT
  Age: 49 Year
  Sex: Female

DRUGS (5)
  1. NITROFURANTIN CAP 100MG [Concomitant]
     Dates: start: 20190428, end: 20190505
  2. CAPECITABINE. [Suspect]
     Active Substance: CAPECITABINE
     Indication: BREAST CANCER FEMALE
     Dosage: ?          OTHER FREQUENCY:BIDX14DAYS,7OFF;?
     Route: 048
     Dates: start: 20190222, end: 20190525
  3. CAPECITABINE. [Suspect]
     Active Substance: CAPECITABINE
     Indication: BREAST CANCER FEMALE
     Dosage: ?          OTHER FREQUENCY:BIDX14DAYS, 7 OFF;?
     Route: 048
     Dates: start: 20190222, end: 20190525
  4. NITROFURANTIN CAP 100MG [Concomitant]
     Dates: start: 20190408, end: 20190415
  5. GABAPENTIN 100MG CAPS [Concomitant]

REACTIONS (4)
  - Recurrent cancer [None]
  - Therapeutic product effect incomplete [None]
  - Dyspnoea [None]
  - Thrombosis [None]

NARRATIVE: CASE EVENT DATE: 20190712
